FAERS Safety Report 15658654 (Version 2)
Quarter: 2018Q4

REPORT INFORMATION
  Report Type: Spontaneous
  Country: US (occurrence: US)
  Receive Date: 20181126
  Receipt Date: 20181130
  Transmission Date: 20190205
  Serious: Yes (Hospitalization)
  Sender: FDA-Public Use
  Company Number: US-ACTELION-A-NJ2018-182530

PATIENT
  Age: 77 Year
  Sex: Female
  Weight: 68.27 kg

DRUGS (5)
  1. VENTAVIS [Suspect]
     Active Substance: ILOPROST
     Indication: PULMONARY ARTERIAL HYPERTENSION
     Dosage: 5.0 MCG, 6-9 TIMES PER DAY
     Route: 055
  2. TRACLEER [Concomitant]
     Active Substance: BOSENTAN
  3. WARFARIN [Concomitant]
     Active Substance: WARFARIN
  4. AMLODIPINE [Concomitant]
     Active Substance: AMLODIPINE BESYLATE
  5. OPSUMIT [Concomitant]
     Active Substance: MACITENTAN

REACTIONS (4)
  - Respiratory disorder [Unknown]
  - Pulmonary arterial hypertension [Recovering/Resolving]
  - Disease progression [Recovering/Resolving]
  - Therapy change [Recovering/Resolving]
